FAERS Safety Report 7629679-8 (Version None)
Quarter: 2011Q3

REPORT INFORMATION
  Report Type: 
  Country: None (occurrence: None)
  Receive Date: 20110722
  Receipt Date: 20110715
  Transmission Date: 20111222
  Serious: Yes (Life-Threatening, Hospitalization)
  Sender: FDA-Public Use
  Company Number: US-JNJFOC-20110706956

PATIENT
  Age: 30 Year
  Sex: Female
  Weight: 90.72 kg

DRUGS (4)
  1. HYDROCODONE BITARTRATE AND ACETAMINOPHEN [Suspect]
     Indication: PRODUCT USED FOR UNKNOWN INDICATION
     Route: 065
  2. ULTRAM [Suspect]
     Indication: PRODUCT USED FOR UNKNOWN INDICATION
     Route: 065
  3. TYLENOL PM [Suspect]
     Indication: PRODUCT USED FOR UNKNOWN INDICATION
     Route: 065
  4. VICODIN [Suspect]
     Indication: PRODUCT USED FOR UNKNOWN INDICATION
     Route: 048

REACTIONS (12)
  - TACHYPNOEA [None]
  - RECTAL HAEMORRHAGE [None]
  - HYPOTENSION [None]
  - DRUG ABUSE [None]
  - TACHYCARDIA [None]
  - MULTIPLE DRUG OVERDOSE [None]
  - NAUSEA [None]
  - PYREXIA [None]
  - HYPERTENSION [None]
  - VOMITING [None]
  - COMA [None]
  - HYPONATRAEMIA [None]
